FAERS Safety Report 11223824 (Version 1)
Quarter: 2015Q2

REPORT INFORMATION
  Report Type: Spontaneous
  Country: US (occurrence: US)
  Receive Date: 20150629
  Receipt Date: 20150629
  Transmission Date: 20150821
  Serious: Yes (Hospitalization)
  Sender: FDA-Public Use
  Company Number: US-AUROBINDO-AUR-APL-2015-05542

PATIENT
  Sex: Female

DRUGS (8)
  1. LYRICA [Suspect]
     Active Substance: PREGABALIN
     Indication: RESTLESSNESS
  2. LYRICA [Suspect]
     Active Substance: PREGABALIN
     Indication: PARAESTHESIA
     Dosage: 75 MG, TWO TIMES A DAY
     Route: 065
  3. HYDROCODONE [Suspect]
     Active Substance: HYDROCODONE
     Indication: NECK PAIN
  4. CLONAZEPAM. [Suspect]
     Active Substance: CLONAZEPAM
     Indication: ANXIETY
     Dosage: 1 MG, UNK
     Dates: start: 2010
  5. HYDROCODONE [Suspect]
     Active Substance: HYDROCODONE
     Indication: ARTHRITIS
  6. HYDROCHLOROTHIAZIDE 12.5 MG [Suspect]
     Active Substance: HYDROCHLOROTHIAZIDE
     Indication: BLOOD PRESSURE
     Dosage: 12.5 MG, ONCE A DAY
     Route: 065
     Dates: start: 2010
  7. LYRICA [Suspect]
     Active Substance: PREGABALIN
     Indication: PAIN
  8. HYDROCODONE [Suspect]
     Active Substance: HYDROCODONE
     Indication: BACK PAIN
     Dosage: 10 MG, 3 TIMES A DAY
     Route: 065
     Dates: start: 2011

REACTIONS (6)
  - Tremor [Recovering/Resolving]
  - Off label use [Unknown]
  - Pain [Recovering/Resolving]
  - Restlessness [Recovering/Resolving]
  - Sleep disorder [Recovering/Resolving]
  - Paraesthesia [Recovering/Resolving]

NARRATIVE: CASE EVENT DATE: 2010
